FAERS Safety Report 8438942-2 (Version None)
Quarter: 2012Q2

REPORT INFORMATION
  Report Type: 
  Country: None (occurrence: None)
  Receive Date: 20120323
  Receipt Date: 20110712
  Transmission Date: 20120825
  Serious: Yes (Other)
  Sender: FDA-Public Use
  Company Number: 163-21880-11053424

PATIENT
  Age: 66 Year
  Sex: Male

DRUGS (13)
  1. OXYCODONE-ACETAMINOPHEN (OXYCOCET) [Concomitant]
  2. KLOR-CON [Concomitant]
  3. LOMOTIL [Concomitant]
  4. REVLIMID [Suspect]
     Indication: MULTIPLE MYELOMA
     Dosage: 25 MG, DAILY X 21 DYS, OFF 7 DAYS, PO
     Route: 048
     Dates: start: 20080801
  5. DEXAMETHASONE [Concomitant]
  6. DOXAZOSIN MESYLATE (DOXAZOSIN MESILATE) [Concomitant]
  7. COZAAR [Concomitant]
  8. ASPIRIN [Concomitant]
  9. MULTIGEN (MULTIGEN-AL) [Concomitant]
  10. FOLIC ACID [Concomitant]
  11. RANITIDINE HCL (RANITIDINE HYDROCHLORIDE) [Concomitant]
  12. HYDROCODONE-ACETAMINOPHEN (REMEDEINE) [Concomitant]
  13. ZOMETA [Concomitant]

REACTIONS (1)
  - THORACIC VERTEBRAL FRACTURE [None]
